FAERS Safety Report 11183772 (Version 2)
Quarter: 2015Q2

REPORT INFORMATION
  Report Type: Spontaneous
  Country: US (occurrence: US)
  Receive Date: 20150612
  Receipt Date: 20150615
  Transmission Date: 20150821
  Serious: Yes (Other)
  Sender: FDA-Public Use
  Company Number: US-SA-2015SA082188

PATIENT
  Sex: Female

DRUGS (2)
  1. CLOMID [Suspect]
     Active Substance: CLOMIPHENE CITRATE
     Route: 065
     Dates: end: 2013
  2. CLOMID [Suspect]
     Active Substance: CLOMIPHENE CITRATE
     Route: 065
     Dates: start: 201501

REACTIONS (1)
  - Breast cancer [Unknown]

NARRATIVE: CASE EVENT DATE: 2015
